FAERS Safety Report 6557992-4 (Version None)
Quarter: 2010Q1

REPORT INFORMATION
  Report Type: 
  Country: None (occurrence: None)
  Receive Date: 20100129
  Receipt Date: 20100121
  Transmission Date: 20100710
  Serious: Yes (Hospitalization, Other)
  Sender: FDA-Public Use
  Company Number: DE-ROCHE-665266

PATIENT
  Sex: Male
  Weight: 101 kg

DRUGS (5)
  1. BEVACIZUMAB [Suspect]
     Dosage: 505 MG
     Route: 042
     Dates: start: 20090812, end: 20091007
  2. IRINOTECAN HCL [Concomitant]
     Route: 042
     Dates: start: 20090812, end: 20091007
  3. 5-FU [Concomitant]
     Dosage: BOLUS APPLICATION
     Route: 042
     Dates: start: 20090812, end: 20091007
  4. 5-FU [Concomitant]
     Dosage: CYCLICAL ADMINISTRATION BY A PUMP APPLICATION,
     Route: 042
     Dates: start: 20090812, end: 20091007
  5. CALCIUM FOLINATE [Concomitant]
     Route: 042
     Dates: end: 20091007

REACTIONS (4)
  - DYSPNOEA [None]
  - INFECTION [None]
  - PULMONARY EMBOLISM [None]
  - RESPIRATORY FAILURE [None]
